FAERS Safety Report 22172848 (Version 2)
Quarter: 2023Q2

REPORT INFORMATION
  Report Type: Spontaneous
  Country: JP (occurrence: JP)
  Receive Date: 20230404
  Receipt Date: 20230517
  Transmission Date: 20230722
  Serious: Yes (Death, Hospitalization)
  Sender: FDA-Public Use
  Company Number: JP-JNJFOC-20230402452

PATIENT
  Age: 75 Year
  Sex: Male

DRUGS (3)
  1. UPTRAVI [Suspect]
     Active Substance: SELEXIPAG
     Indication: Pulmonary arterial hypertension
     Route: 048
     Dates: start: 20220913, end: 20221129
  2. ADCIRCA [Concomitant]
     Active Substance: TADALAFIL
     Indication: Pulmonary arterial hypertension
     Dates: end: 20221129
  3. OPSUMIT [Concomitant]
     Active Substance: MACITENTAN
     Indication: Pulmonary arterial hypertension
     Route: 048
     Dates: end: 20221129

REACTIONS (3)
  - Pulmonary arterial hypertension [Fatal]
  - Right ventricular failure [Fatal]
  - Cardiac failure congestive [Fatal]

NARRATIVE: CASE EVENT DATE: 20221026
